FAERS Safety Report 7774548-6 (Version None)
Quarter: 2011Q3

REPORT INFORMATION
  Report Type: 
  Country: None (occurrence: None)
  Receive Date: 20110923
  Receipt Date: 20110923
  Transmission Date: 20111222
  Serious: Yes (Life-Threatening, Hospitalization, Other)
  Sender: FDA-Public Use
  Company Number: None

PATIENT
  Age: 50 Year
  Sex: Male
  Weight: 104.32 kg

DRUGS (1)
  1. VYTORIN [Suspect]
     Indication: BLOOD CHOLESTEROL INCREASED
     Dosage: ONE TABLET
     Route: 048
     Dates: start: 20080730, end: 20110215

REACTIONS (8)
  - OESOPHAGEAL SPASM [None]
  - CARDIAC DISORDER [None]
  - PAIN IN JAW [None]
  - MUSCULOSKELETAL PAIN [None]
  - ARTHRALGIA [None]
  - PAIN IN EXTREMITY [None]
  - NECK PAIN [None]
  - CHEST PAIN [None]
